FAERS Safety Report 22230570 (Version 1)
Quarter: 2023Q2

REPORT INFORMATION
  Report Type: Spontaneous
  Country: US (occurrence: US)
  Receive Date: 20230420
  Receipt Date: 20230420
  Transmission Date: 20230722
  Serious: No
  Sender: FDA-Public Use
  Company Number: US-GLAXOSMITHKLINE-USCH2023016129

PATIENT

DRUGS (1)
  1. NICORETTE [Suspect]
     Active Substance: NICOTINE
     Indication: Smoking cessation therapy
     Dosage: UNK

REACTIONS (5)
  - Nicotine dependence [Unknown]
  - Gastrointestinal disorder [Unknown]
  - Hiccups [Unknown]
  - Flatulence [Unknown]
  - Diarrhoea [Unknown]
